FAERS Safety Report 8869913 (Version 1)
Quarter: 2012Q4

REPORT INFORMATION
  Report Type: Spontaneous
  Country: US (occurrence: None)
  Receive Date: 20121025
  Receipt Date: 20121025
  Transmission Date: 20130627
  Serious: Yes (Disabling)
  Sender: FDA-Public Use
  Company Number: None

PATIENT
  Age: 42 Year
  Sex: Female
  Weight: 81.65 kg

DRUGS (1)
  1. BUDEPRION [Suspect]
     Indication: SMOKING CESSATION THERAPY
     Dates: start: 20120122, end: 20120130

REACTIONS (5)
  - Muscle twitching [None]
  - Vitamin D decreased [None]
  - Vitamin B12 decreased [None]
  - Quality of life decreased [None]
  - Sleep disorder [None]
